FAERS Safety Report 20667603 (Version 1)
Quarter: 2022Q2

REPORT INFORMATION
  Report Type: Spontaneous
  Country: CA (occurrence: CA)
  Receive Date: 20220404
  Receipt Date: 20220404
  Transmission Date: 20220720
  Serious: Yes (Hospitalization)
  Sender: FDA-Public Use
  Company Number: CA-TEVA-2022-CA-2022397

PATIENT
  Age: 13 Year
  Sex: Male
  Weight: 54 kg

DRUGS (5)
  1. CISPLATIN [Suspect]
     Active Substance: CISPLATIN
     Indication: Hepatocellular carcinoma
     Route: 041
  2. DOXORUBICIN HYDROCHLORIDE [Concomitant]
     Active Substance: DOXORUBICIN HYDROCHLORIDE
  3. NEXAVAR [Concomitant]
     Active Substance: SORAFENIB
  4. ONDANSETRON [Concomitant]
     Active Substance: ONDANSETRON
  5. TRIMETHOPRIM-SULFAMETHOXAZOL [Concomitant]

REACTIONS (7)
  - Blood creatinine increased [Recovered/Resolved]
  - Dehydration [Recovered/Resolved]
  - Fatigue [Recovered/Resolved]
  - Hyperkalaemia [Recovered/Resolved]
  - Hyponatraemia [Recovered/Resolved]
  - Renal salt-wasting syndrome [Recovered/Resolved]
  - Weight decreased [Recovered/Resolved]
